FAERS Safety Report 20237317 (Version 1)
Quarter: 2021Q4

REPORT INFORMATION
  Report Type: Spontaneous
  Country: US (occurrence: US)
  Receive Date: 20211228
  Receipt Date: 20211228
  Transmission Date: 20220303
  Serious: No
  Sender: FDA-Public Use
  Company Number: US-PFIZER INC-202101790519

PATIENT
  Age: 89 Year
  Sex: Female
  Weight: 81.65 kg

DRUGS (1)
  1. NORVASC [Suspect]
     Active Substance: AMLODIPINE BESYLATE
     Dosage: UNK

REACTIONS (4)
  - Chest discomfort [Unknown]
  - Abdominal pain upper [Unknown]
  - Dyspnoea [Unknown]
  - Chest pain [Unknown]
